FAERS Safety Report 8809401 (Version 1)
Quarter: 2012Q4

REPORT INFORMATION
  Report Type: 
  Country: BR (occurrence: BR)
  Receive Date: 20120926
  Receipt Date: 20120926
  Transmission Date: 20130627
  Serious: Yes (Death)
  Sender: FDA-Public Use
  Company Number: PHHY2012BR083657

PATIENT
  Sex: Male
  Weight: 130 kg

DRUGS (1)
  1. RASILEZ AMLO [Suspect]
     Indication: HYPERTENSION
     Dosage: 1 tablet (300/unknown mg) a day
     Route: 048

REACTIONS (1)
  - Dengue fever [Fatal]
